FAERS Safety Report 8520329-5 (Version None)
Quarter: 2012Q3

REPORT INFORMATION
  Report Type: 
  Country: None (occurrence: None)
  Receive Date: 20120719
  Receipt Date: 20120713
  Transmission Date: 20120928
  Serious: Yes (Hospitalization)
  Sender: FDA-Public Use
  Company Number: CA-US-EMD SERONO, INC.-7147830

PATIENT
  Sex: Female

DRUGS (1)
  1. REBIF [Suspect]
     Indication: MULTIPLE SCLEROSIS
     Route: 058
     Dates: start: 20120710

REACTIONS (6)
  - BACK PAIN [None]
  - SKIN BURNING SENSATION [None]
  - MUSCLE TIGHTNESS [None]
  - MUSCULOSKELETAL CHEST PAIN [None]
  - POLLAKIURIA [None]
  - SYNCOPE [None]
